FAERS Safety Report 10244142 (Version 1)
Quarter: 2014Q2

REPORT INFORMATION
  Report Type: Spontaneous
  Country: US (occurrence: US)
  Receive Date: 20140618
  Receipt Date: 20140618
  Transmission Date: 20141212
  Serious: No
  Sender: FDA-Public Use
  Company Number: US-B.I. PHARMACEUTICALS,INC./RIDGEFIELD-2014-BI-25929BP

PATIENT
  Sex: Male
  Weight: 85 kg

DRUGS (6)
  1. ZANTAC (RANITIDINE HYDROCHLORIDE) [Suspect]
     Indication: DYSPEPSIA
     Route: 065
  2. LISINOPRIL [Concomitant]
     Route: 065
  3. ACYCLOVIR [Concomitant]
     Route: 065
  4. SIMVASTATIN [Concomitant]
     Route: 065
  5. FINASTERIDE [Concomitant]
     Route: 065
  6. DEPOTESTOSTERONE [Concomitant]
     Dosage: STRENGTH:05 CC
     Route: 065

REACTIONS (1)
  - Drug ineffective [Unknown]
